FAERS Safety Report 9297777 (Version 3)
Quarter: 2013Q2

REPORT INFORMATION
  Report Type: Report from Study
  Country: NL (occurrence: NL)
  Receive Date: 20130520
  Receipt Date: 20130610
  Transmission Date: 20140414
  Serious: Yes (Death, Other)
  Sender: FDA-Public Use
  Company Number: PHHY2013NL049731

PATIENT
  Sex: Male

DRUGS (7)
  1. ZOMETA [Suspect]
     Indication: METASTASES TO BONE
     Dosage: 4 MG PER 100 ML ONCE EVERY 4 WEEKS
     Route: 042
  2. ZOMETA [Suspect]
     Dosage: 4 MG PER 100 ML ONCE EVERY 4 WEEKS
     Route: 042
     Dates: start: 20120326
  3. ZOMETA [Suspect]
     Dosage: 4 MG PER 100 ML ONCE EVERY 4 WEEKS
     Route: 042
     Dates: start: 20130328
  4. ZOMETA [Suspect]
     Dosage: 4 MG PER 100 ML ONCE EVERY 4 WEEKS
     Route: 042
     Dates: start: 20130426
  5. OXYNORM [Concomitant]
     Dosage: UNK UKN, UNK
  6. OXYCONTIN [Concomitant]
     Dosage: UNK UKN, UNK
  7. AMITRIPTYLINE [Concomitant]
     Dosage: UNK UKN, UNK

REACTIONS (4)
  - Cardiac arrest [Fatal]
  - Terminal state [Unknown]
  - General physical health deterioration [Unknown]
  - Malaise [Unknown]
